FAERS Safety Report 9770704 (Version 1)
Quarter: 2013Q4

REPORT INFORMATION
  Report Type: Spontaneous
  Country: US (occurrence: US)
  Receive Date: 20131218
  Receipt Date: 20131218
  Transmission Date: 20140711
  Serious: No
  Sender: FDA-Public Use
  Company Number: US-PFIZER INC-2013361506

PATIENT
  Age: 61 Year
  Sex: Female
  Weight: 112.93 kg

DRUGS (4)
  1. EFFEXOR XR [Suspect]
     Indication: DEPRESSION
     Dosage: 75 MG, DAILY
     Dates: start: 200512, end: 201212
  2. EFFEXOR XR [Suspect]
     Dosage: UNK
     Dates: start: 201305, end: 2013
  3. EFFEXOR XR [Suspect]
     Dosage: 75 MG, ALTERNATE DAY
     Dates: start: 2013
  4. EFFEXOR [Suspect]
     Dosage: UNK

REACTIONS (8)
  - Depression [Recovered/Resolved]
  - Agitation [Unknown]
  - Movement disorder [Unknown]
  - Withdrawal syndrome [Unknown]
  - Nervousness [Unknown]
  - Malaise [Unknown]
  - Activities of daily living impaired [Unknown]
  - Hyperhidrosis [Unknown]
